FAERS Safety Report 15195020 (Version 1)
Quarter: 2018Q3

REPORT INFORMATION
  Report Type: Spontaneous
  Country: US (occurrence: US)
  Receive Date: 20180725
  Receipt Date: 20180725
  Transmission Date: 20181010
  Serious: No
  Sender: FDA-Public Use
  Company Number: US-SA-2018SA198837

PATIENT
  Age: 36 Year
  Sex: Male

DRUGS (1)
  1. DUPILUMAB [Suspect]
     Active Substance: DUPILUMAB
     Dosage: UNK
     Dates: start: 201412, end: 201801

REACTIONS (1)
  - Dermatitis [Unknown]
